FAERS Safety Report 9748242 (Version 1)
Quarter: 2013Q4

REPORT INFORMATION
  Report Type: Spontaneous
  Country: US (occurrence: None)
  Receive Date: 20131206
  Receipt Date: 20131206
  Transmission Date: 20140711
  Serious: Yes (Other)
  Sender: FDA-Public Use
  Company Number: VAL_02851_2013

PATIENT
  Age: 78 Year
  Sex: Male

DRUGS (6)
  1. METOPROLOL [Suspect]
     Indication: HYPERTENSION
  2. AMLODIPINE [Suspect]
     Indication: HYPERTENSION
  3. SPIRONOLACTONE [Suspect]
     Indication: HYPERTENSION
  4. LISINOPRIL [Suspect]
     Indication: HYPERTENSION
  5. CLONIDINE [Suspect]
     Indication: HYPERTENSION
  6. HYDRALAZINE [Suspect]
     Indication: HYPERTENSION

REACTIONS (3)
  - Dry mouth [None]
  - Diarrhoea [None]
  - Blood pressure increased [None]
